FAERS Safety Report 22973285 (Version 5)
Quarter: 2023Q4

REPORT INFORMATION
  Report Type: Report from Study
  Country: US (occurrence: US)
  Receive Date: 20230922
  Receipt Date: 20231220
  Transmission Date: 20240110
  Serious: Yes (Hospitalization, Other)
  Sender: FDA-Public Use
  Company Number: US-ABBVIE-5412749

PATIENT
  Sex: Female
  Weight: 72.57 kg

DRUGS (5)
  1. IMBRUVICA [Suspect]
     Active Substance: IBRUTINIB
     Indication: Chronic lymphocytic leukaemia
     Route: 048
     Dates: start: 20230913, end: 20230925
  2. IMBRUVICA [Suspect]
     Active Substance: IBRUTINIB
     Indication: Chronic lymphocytic leukaemia
     Dosage: START DATE 2023
     Route: 048
  3. VITAMIN E [Concomitant]
     Active Substance: .ALPHA.-TOCOPHEROL
     Indication: Product used for unknown indication
  4. ASPIRIN [Concomitant]
     Active Substance: ASPIRIN
     Indication: Product used for unknown indication
  5. WARFARIN SODIUM [Concomitant]
     Active Substance: WARFARIN SODIUM
     Indication: Product used for unknown indication

REACTIONS (28)
  - Hospitalisation [Unknown]
  - Tumour pain [Unknown]
  - Urinary tract infection [Unknown]
  - Hypertension [Unknown]
  - Haemoglobin decreased [Unknown]
  - Respiratory disorder [Unknown]
  - Exposure to extreme temperature [Not Recovered/Not Resolved]
  - Fatigue [Not Recovered/Not Resolved]
  - Contusion [Unknown]
  - Weight decreased [Unknown]
  - Pain [Unknown]
  - Cardiac discomfort [Unknown]
  - Eye swelling [Not Recovered/Not Resolved]
  - Vitreous floaters [Not Recovered/Not Resolved]
  - Diabetes mellitus [Not Recovered/Not Resolved]
  - Pain [Not Recovered/Not Resolved]
  - Memory impairment [Not Recovered/Not Resolved]
  - Neoplasm malignant [Not Recovered/Not Resolved]
  - Pruritus [Recovering/Resolving]
  - Dyspnoea [Not Recovered/Not Resolved]
  - Lymphadenopathy [Unknown]
  - Increased tendency to bruise [Unknown]
  - Arthralgia [Not Recovered/Not Resolved]
  - Discomfort [Unknown]
  - Fungal foot infection [Unknown]
  - Painful respiration [Unknown]
  - Onychomadesis [Unknown]
  - Dizziness [Not Recovered/Not Resolved]

NARRATIVE: CASE EVENT DATE: 20230101
